FAERS Safety Report 4465734-1 (Version None)
Quarter: 2004Q3

REPORT INFORMATION
  Report Type: 
  Country: None (occurrence: None)
  Receive Date: 20040929
  Receipt Date: 20040929
  Transmission Date: 20050211
  Serious: Yes (Other)
  Sender: FDA-Public Use
  Company Number: None

PATIENT
  Age: 42 Year
  Sex: Male
  Weight: 83 kg

DRUGS (11)
  1. PREDNISONE [Suspect]
     Indication: COLITIS ULCERATIVE
     Dosage: 5MG  DAILY X7DAYS  ORAL
     Route: 048
     Dates: start: 20040609, end: 20040616
  2. PREDNSONE -TAPERED- [Suspect]
     Dosage: 5MG  QOTHER X10DAYS  ORAL
     Route: 048
     Dates: start: 20040617, end: 20040629
  3. ACETAMINOPHEN TAB [Concomitant]
  4. AZATHIOPRINE TAB [Concomitant]
  5. MAGNESIUM HYDROXIDE SUSP [Concomitant]
  6. MESALAMINE SR TAB [Concomitant]
  7. METHYLPREDNISOLONE SODIUM SUCCINATE [Concomitant]
  8. OMEPRAZOLE [Concomitant]
  9. ROFECOXIB TAB [Concomitant]
  10. SODIUM CHLORIDE INJ [Concomitant]
  11. NACL [Concomitant]

REACTIONS (1)
  - OSTEOPOROSIS [None]
